FAERS Safety Report 7930476-4 (Version None)
Quarter: 2011Q4

REPORT INFORMATION
  Report Type: 
  Country: None (occurrence: None)
  Receive Date: 20111121
  Receipt Date: 20111107
  Transmission Date: 20120403
  Serious: Yes (Hospitalization)
  Sender: FDA-Public Use
  Company Number: US-ROCHE-1012307

PATIENT
  Sex: Female

DRUGS (11)
  1. HERCEPTIN [Suspect]
     Indication: BREAST CANCER
     Dosage: OVER 90 MIN WEEK 1
     Route: 042
     Dates: start: 20090623
  2. EPIRUBICIN HYDROCHLORIDE [Suspect]
     Indication: BREAST CANCER
     Dosage: OVER 15 MINUTES ON DAY 1
     Route: 042
  3. HERCEPTIN [Suspect]
     Dosage: OVER 30 MINUTES
     Route: 042
  4. FLUOROURACIL [Suspect]
     Indication: BREAST CANCER
     Dosage: ON DAY 1
     Route: 042
  5. PROCHLORPERAZINE [Suspect]
     Indication: PRODUCT USED FOR UNKNOWN INDICATION
  6. ONDANSETRON HYDROCHLORIDE [Suspect]
     Indication: PRODUCT USED FOR UNKNOWN INDICATION
  7. CYCLOPHOSPHAMIDE [Suspect]
     Indication: BREAST CANCER
     Dosage: OVER 30 MIN ON DAY 1
     Route: 042
  8. PACLITAXEL [Suspect]
     Indication: BREAST CANCER
     Dosage: OVER 60 MINUTES WEEKLY
     Route: 042
     Dates: start: 20090623
  9. DEXAMETHASONE [Suspect]
     Indication: PRODUCT USED FOR UNKNOWN INDICATION
  10. FILGRASTIM [Suspect]
     Indication: PRODUCT USED FOR UNKNOWN INDICATION
  11. HERCEPTIN [Suspect]
     Dosage: OVER 60 MINUTES
     Route: 042

REACTIONS (6)
  - HEADACHE [None]
  - SYNCOPE [None]
  - DIZZINESS [None]
  - DYSPNOEA [None]
  - CONFUSIONAL STATE [None]
  - HEMIPARESIS [None]
